FAERS Safety Report 6458974-3 (Version None)
Quarter: 2009Q4

REPORT INFORMATION
  Report Type: 
  Country: None (occurrence: None)
  Receive Date: 20091127
  Receipt Date: 20091116
  Transmission Date: 20100525
  Serious: Yes (Congenital Anomaly, Other)
  Sender: FDA-Public Use
  Company Number: GB-ELI_LILLY_AND_COMPANY-GB200911004173

PATIENT

DRUGS (7)
  1. PROZAC [Suspect]
     Dosage: 20 MG, UNK
     Route: 064
     Dates: start: 20081113
  2. AMOXICILLIN [Concomitant]
     Dosage: 250 MG, UNK
     Route: 064
  3. BECOTIDE [Concomitant]
     Dosage: 200 UG, 4/D
     Route: 064
     Dates: start: 20061222
  4. AMOXICILLIN AND CLAVULANATE POTASSIUM [Concomitant]
     Route: 064
  5. GAVISCON /00237601/ [Concomitant]
     Dosage: UNK, UNK
     Route: 064
     Dates: start: 20090508, end: 20090823
  6. LACTULOSE [Concomitant]
     Route: 064
     Dates: start: 20090803, end: 20090823
  7. ALBUTEROL [Concomitant]
     Route: 064
     Dates: start: 20061113

REACTIONS (2)
  - DRUG EXPOSURE DURING PREGNANCY [None]
  - HYPOSPADIAS [None]
